FAERS Safety Report 12930991 (Version 1)
Quarter: 2016Q4

REPORT INFORMATION
  Report Type: Spontaneous
  Country: GB (occurrence: GB)
  Receive Date: 20161110
  Receipt Date: 20161110
  Transmission Date: 20170207
  Serious: Yes (Hospitalization)
  Sender: FDA-Public Use
  Company Number: GB-AIRGAS USA-1059442

PATIENT
  Age: 64 Year
  Sex: Female

DRUGS (1)
  1. OXYGEN. [Suspect]
     Active Substance: OXYGEN

REACTIONS (3)
  - Thermal burn [Recovering/Resolving]
  - Intentional product misuse [Unknown]
  - Accident [Unknown]
